FAERS Safety Report 5608086-3 (Version None)
Quarter: 2008Q1

REPORT INFORMATION
  Report Type: 
  Country: None (occurrence: None)
  Receive Date: 20080125
  Receipt Date: 20080110
  Transmission Date: 20080703
  Serious: Yes (Other)
  Sender: FDA-Public Use
  Company Number: GB-1165017

PATIENT
  Age: 65 Year
  Sex: Male

DRUGS (4)
  1. AZOPT [Suspect]
     Indication: OCULAR HYPERTENSION
     Dosage: OPHTHALMIC
     Route: 047
  2. TRAVATAN (TRAVOPROST) 0.004 % SOULTION EYE DROPS, SOLUTION [Suspect]
     Indication: OCULAR HYPERTENSION
     Dosage: OPHTHLMIC
     Route: 047
  3. TIMOPTOL LA (TIMOLOL MALEATE) INDICATION FOR USE WAS OCULAR HYPERTENSI [Concomitant]
  4. XALATAN (LATANOPROST) INDICATION FOR USE WAS OCULAR HYPERTENSION - OPH [Concomitant]

REACTIONS (6)
  - ABDOMINAL PAIN [None]
  - DYSPEPSIA [None]
  - MYALGIA [None]
  - NOCTURIA [None]
  - PAIN IN EXTREMITY [None]
  - SLEEP DISORDER [None]
